FAERS Safety Report 6396352-6 (Version None)
Quarter: 2009Q4

REPORT INFORMATION
  Report Type: 
  Country: None (occurrence: None)
  Receive Date: 20091012
  Receipt Date: 20091005
  Transmission Date: 20100525
  Serious: Yes (Death, Hospitalization, Other)
  Sender: FDA-Public Use
  Company Number: PHEH2009US11590

PATIENT
  Sex: Female

DRUGS (7)
  1. EXJADE [Suspect]
     Indication: IRON OVERLOAD
     Dosage: 1500 MG DAILY
     Route: 048
     Dates: start: 20081226, end: 20090401
  2. LABETALOL HCL [Concomitant]
     Route: 048
  3. CELEXA [Concomitant]
     Route: 048
  4. PERCOCET [Concomitant]
     Route: 048
  5. LEVOTHYROXINE [Concomitant]
  6. DECADRON                                /CAN/ [Concomitant]
     Route: 048
  7. CLONIDINE [Concomitant]
     Route: 048

REACTIONS (5)
  - CONFUSIONAL STATE [None]
  - FALL [None]
  - HEAD INJURY [None]
  - MALIGNANT NEOPLASM PROGRESSION [None]
  - METASTASES TO MENINGES [None]
